FAERS Safety Report 6154092-2 (Version None)
Quarter: 2009Q2

REPORT INFORMATION
  Report Type: 
  Country: None (occurrence: None)
  Receive Date: 20090414
  Receipt Date: 20090406
  Transmission Date: 20091009
  Serious: Yes (Disabling)
  Sender: FDA-Public Use
  Company Number: PHEH2009US02706

PATIENT
  Sex: Female
  Weight: 80.9 kg

DRUGS (1)
  1. GLEEVEC [Suspect]
     Indication: CHRONIC MYELOID LEUKAEMIA
     Dosage: 400 MG, QD
     Route: 048
     Dates: start: 20050101, end: 20080901

REACTIONS (5)
  - ASPERGILLOSIS [None]
  - MYCOBACTERIUM AVIUM COMPLEX INFECTION [None]
  - PULMONARY MASS [None]
  - RIB FRACTURE [None]
  - SEVERE ACUTE RESPIRATORY SYNDROME [None]
